FAERS Safety Report 8057167-6 (Version None)
Quarter: 2012Q1

REPORT INFORMATION
  Report Type: 
  Country: None (occurrence: None)
  Receive Date: 20120119
  Receipt Date: 20120113
  Transmission Date: 20120608
  Serious: Yes (Hospitalization)
  Sender: FDA-Public Use
  Company Number: JP-ABBOTT-11P-087-0873111-00

PATIENT
  Sex: Male
  Weight: 46 kg

DRUGS (10)
  1. CLARITHROMYCIN [Suspect]
     Indication: PRODUCTIVE COUGH
  2. CLARITHROMYCIN [Suspect]
     Indication: COUGH
  3. TULOBUTEROL [Concomitant]
     Indication: COUGH
  4. PRONASE [Concomitant]
     Indication: COUGH
     Dosage: 3 IN 1, IN THE AM, MID DAY AND PM
     Route: 048
     Dates: start: 20111024
  5. LOSARTAN POTASSIUM [Concomitant]
     Indication: PRODUCT USED FOR UNKNOWN INDICATION
     Dosage: DAILY, AFTER BREAKFAST
     Route: 048
     Dates: start: 20101108
  6. CLARITHROMYCIN [Suspect]
     Indication: NASOPHARYNGITIS
     Dosage: 2 IN 1 DAY, IN THE MORNING AND EVENING
     Route: 048
     Dates: start: 20111024
  7. PRONASE [Concomitant]
     Indication: PRODUCTIVE COUGH
  8. PRONASE [Concomitant]
     Indication: INFLAMMATION
  9. TULOBUTEROL [Concomitant]
     Indication: NASOPHARYNGITIS
     Route: 062
     Dates: start: 20111024
  10. HUSCODE [Concomitant]
     Indication: COUGH
     Dosage: IN THE MORNING, DAYTIME AND EVENING
     Route: 048
     Dates: start: 20111024

REACTIONS (6)
  - INCORRECT DOSE ADMINISTERED [None]
  - CONVULSION [None]
  - PYREXIA [None]
  - INFLAMMATION [None]
  - DRUG LEVEL INCREASED [None]
  - DYSKINESIA [None]
